FAERS Safety Report 6188878-5 (Version None)
Quarter: 2009Q2

REPORT INFORMATION
  Report Type: 
  Country: None (occurrence: None)
  Receive Date: 20090513
  Receipt Date: 20090504
  Transmission Date: 20091009
  Serious: Yes (Other)
  Sender: FDA-Public Use
  Company Number: PHHY2009BR17284

PATIENT
  Sex: Female

DRUGS (3)
  1. RITALIN [Suspect]
     Dosage: 10 MG, UNK
     Route: 048
  2. RISPERIDONE [Concomitant]
  3. PAROXETINE HCL [Concomitant]

REACTIONS (7)
  - AGGRESSION [None]
  - AGITATION [None]
  - ANOREXIA [None]
  - CRYING [None]
  - NAUSEA [None]
  - PAIN [None]
  - WEIGHT DECREASED [None]
